APPROVED DRUG PRODUCT: HIWOLFIA
Active Ingredient: RAUWOLFIA SERPENTINA ROOT
Strength: 100MG
Dosage Form/Route: TABLET;ORAL
Application: N009276 | Product #004
Applicant: BOWMAN PHARMACEUTICALS INC
Approved: Approved Prior to Jan 1, 1982 | RLD: No | RS: No | Type: DISCN